FAERS Safety Report 4696607-7 (Version None)
Quarter: 2005Q2

REPORT INFORMATION
  Report Type: 
  Country: None (occurrence: None)
  Receive Date: 20050620
  Receipt Date: 20040816
  Transmission Date: 20051028
  Serious: Yes (Other)
  Sender: FDA-Public Use
  Company Number: 200412511US

PATIENT
  Age: 67 Year
  Sex: Female
  Weight: 62.7 kg

DRUGS (10)
  1. LANTUS [Suspect]
     Indication: DIABETES MELLITUS INSULIN-DEPENDENT
     Dosage: 20 U QAM
     Dates: start: 20030401, end: 20040301
  2. LANTUS [Suspect]
     Indication: DIABETES MELLITUS INSULIN-DEPENDENT
     Dosage: 18 U QAM
     Dates: start: 20040401
  3. METOPROLOL SUCCINATE [Suspect]
     Indication: HYPERTENSION
     Dosage: 100 MG QD
  4. VITAMINS [Concomitant]
  5. INSULIN LISPRO [Concomitant]
  6. COZAAR [Concomitant]
  7. PRINIVIL [Concomitant]
  8. SIMVASTATIN [Concomitant]
  9. AMITRIPTYLINE HCL [Concomitant]
  10. ASPIRIN [Concomitant]

REACTIONS (1)
  - HYPOGLYCAEMIA [None]
